FAERS Safety Report 6837970-8 (Version None)
Quarter: 2010Q3

REPORT INFORMATION
  Report Type: 
  Country: None (occurrence: None)
  Receive Date: 20100713
  Receipt Date: 20070529
  Transmission Date: 20110219
  Serious: No
  Sender: FDA-Public Use
  Company Number: US-PFIZER INC-2007045160

PATIENT
  Age: 60 Year
  Sex: Female
  Weight: 86 kg

DRUGS (5)
  1. CHANTIX [Suspect]
     Indication: SMOKING CESSATION THERAPY
     Route: 048
     Dates: start: 20070301
  2. FUROSEMIDE [Concomitant]
     Route: 048
  3. ACETYLSALICYLIC ACID [Concomitant]
     Route: 048
  4. CARDIOVASCULAR SYSTEM DRUGS [Concomitant]
     Route: 048
  5. ALL OTHER THERAPEUTIC PRODUCTS [Concomitant]

REACTIONS (2)
  - DRUG INEFFECTIVE [None]
  - NERVOUSNESS [None]
